FAERS Safety Report 25208094 (Version 1)
Quarter: 2025Q2

REPORT INFORMATION
  Report Type: Spontaneous
  Country: FR (occurrence: FR)
  Receive Date: 20250417
  Receipt Date: 20250417
  Transmission Date: 20250716
  Serious: Yes (Other)
  Sender: PFIZER
  Company Number: None

PATIENT
  Age: 78 Year
  Sex: Male

DRUGS (1)
  1. FILGRASTIM [Suspect]
     Active Substance: FILGRASTIM
     Indication: Neutropenia
     Route: 030
     Dates: start: 20250308

REACTIONS (2)
  - Incorrect route of product administration [Unknown]
  - Administration site pain [Unknown]

NARRATIVE: CASE EVENT DATE: 20250308
